FAERS Safety Report 15448816 (Version 1)
Quarter: 2018Q3

REPORT INFORMATION
  Report Type: Spontaneous
  Country: DK (occurrence: DK)
  Receive Date: 20180929
  Receipt Date: 20180929
  Transmission Date: 20181010
  Serious: Yes (Other)
  Sender: FDA-Public Use
  Company Number: PHHY2018DK110649

PATIENT
  Age: 77 Year
  Sex: Male

DRUGS (2)
  1. ACICLOVIR [Suspect]
     Active Substance: ACYCLOVIR
     Indication: PLEOCYTOSIS
     Dosage: UNK
     Route: 065
  2. CEFTRIAXONE. [Concomitant]
     Active Substance: CEFTRIAXONE
     Indication: PLEOCYTOSIS
     Dosage: UNK
     Route: 065

REACTIONS (1)
  - Nephropathy toxic [Recovered/Resolved]
